FAERS Safety Report 17030227 (Version 1)
Quarter: 2019Q4

REPORT INFORMATION
  Report Type: Spontaneous
  Country: US (occurrence: US)
  Receive Date: 20191010
  Receipt Date: 20191010
  Transmission Date: 20200122
  Serious: No
  Sender: FDA-Public Use
  Company Number: None

PATIENT
  Age: 68 Year

DRUGS (1)
  1. AMITRIPTYLINE [Suspect]
     Active Substance: AMITRIPTYLINE

REACTIONS (6)
  - Product substitution issue [None]
  - Drug ineffective [None]
  - Unevaluable event [None]
  - Dizziness [None]
  - Withdrawal syndrome [None]
  - Insomnia [None]
